FAERS Safety Report 6715127-9 (Version None)
Quarter: 2010Q2

REPORT INFORMATION
  Report Type: 
  Country: None (occurrence: None)
  Receive Date: 20100506
  Receipt Date: 20100506
  Transmission Date: 20101027
  Serious: No
  Sender: FDA-Public Use
  Company Number: None

PATIENT

DRUGS (1)
  1. TRANSDERM SCOP [Suspect]
     Indication: MOTION SICKNESS
     Dosage: 1 PATCH EVERY 3 DAYS BEHIND EAR
     Dates: start: 20100323, end: 20100331

REACTIONS (6)
  - BLISTER [None]
  - DEVICE LEAKAGE [None]
  - DEVICE MATERIAL ISSUE [None]
  - ERYTHEMA [None]
  - SKIN BURNING SENSATION [None]
  - SKIN IRRITATION [None]
